FAERS Safety Report 20793536 (Version 1)
Quarter: 2022Q2

REPORT INFORMATION
  Report Type: Spontaneous
  Country: US (occurrence: US)
  Receive Date: 20220506
  Receipt Date: 20220506
  Transmission Date: 20220721
  Serious: No
  Sender: FDA-Public Use
  Company Number: None

PATIENT
  Age: 69 Year
  Sex: Female

DRUGS (1)
  1. POMALYST [Suspect]
     Active Substance: POMALIDOMIDE
     Indication: Plasma cell myeloma
     Dosage: TAKE 1 CAPSULE BY MOUTH DAILY FOR  21 DAYS ON AND 7  DAYS OFF. TAKE  WHOLE WITH  WATER AT THE  SAME
     Route: 048

REACTIONS (2)
  - Pruritus [Unknown]
  - Product dose omission issue [Unknown]
